FAERS Safety Report 25309922 (Version 1)
Quarter: 2025Q2

REPORT INFORMATION
  Report Type: Spontaneous
  Country: JP (occurrence: None)
  Receive Date: 20250514
  Receipt Date: 20250514
  Transmission Date: 20250716
  Serious: Yes (Other)
  Sender: Alvotech
  Company Number: JP-ALVOTECHPMS-2025-ALVOTECHPMS-004035

PATIENT
  Age: 70 Year
  Sex: Female

DRUGS (5)
  1. ADALIMUMAB [Suspect]
     Active Substance: ADALIMUMAB
     Indication: Colitis ulcerative
     Route: 065
  2. BUDESONIDE [Suspect]
     Active Substance: BUDESONIDE
     Indication: Colitis ulcerative
  3. MESALAMINE [Suspect]
     Active Substance: MESALAMINE
     Indication: Colitis ulcerative
  4. BUDESONIDE [Suspect]
     Active Substance: BUDESONIDE
     Indication: Colitis ulcerative
  5. MESALAMINE [Suspect]
     Active Substance: MESALAMINE
     Indication: Colitis ulcerative

REACTIONS (1)
  - Rheumatoid arthritis [Recovered/Resolved]
